FAERS Safety Report 8847525 (Version 1)
Quarter: 2012Q4

REPORT INFORMATION
  Report Type: 
  Country: US (occurrence: US)
  Receive Date: 20121018
  Receipt Date: 20121018
  Transmission Date: 20130627
  Serious: Yes (Hospitalization, Other)
  Sender: FDA-Public Use
  Company Number: US-ELI_LILLY_AND_COMPANY-US201210003070

PATIENT
  Age: 74 Year
  Sex: Female

DRUGS (3)
  1. HUMULIN REGULAR [Suspect]
     Indication: TYPE 2 DIABETES MELLITUS
     Dosage: 4 u, tid
     Dates: start: 1997
  2. HUMULIN REGULAR [Suspect]
     Dosage: 4 u, tid
  3. LANTUS [Concomitant]
     Dosage: 15 u, each evening

REACTIONS (5)
  - Localised infection [Unknown]
  - Osteomyelitis [Unknown]
  - Hearing impaired [Unknown]
  - Foot deformity [Unknown]
  - Neuropathic arthropathy [Unknown]
